FAERS Safety Report 10502989 (Version 3)
Quarter: 2014Q4

REPORT INFORMATION
  Report Type: Report from Study
  Country: US (occurrence: US)
  Receive Date: 20141007
  Receipt Date: 20141106
  Transmission Date: 20150528
  Serious: Yes (Hospitalization, Other)
  Sender: FDA-Public Use
  Company Number: US-ASTRAZENECA-2014SE64946

PATIENT
  Age: 60 Year
  Sex: Female
  Weight: 147.4 kg

DRUGS (46)
  1. TOPROL XL [Suspect]
     Active Substance: METOPROLOL SUCCINATE
     Indication: HYPERTENSION
     Route: 048
  2. TOPROL XL [Suspect]
     Active Substance: METOPROLOL SUCCINATE
     Indication: HEART RATE IRREGULAR
     Route: 048
     Dates: start: 2000
  3. ASPIRIN. [Suspect]
     Active Substance: ASPIRIN
     Route: 065
  4. VITAMIN D [Concomitant]
     Active Substance: CHOLECALCIFEROL
     Indication: VITAMIN D DEFICIENCY
     Dosage: 50000 UNITS WEEK
     Route: 048
  5. DIAZEPAM. [Concomitant]
     Active Substance: DIAZEPAM
     Indication: STRESS
     Route: 048
  6. DIAZEPAM. [Concomitant]
     Active Substance: DIAZEPAM
     Indication: STRESS
     Route: 048
  7. ALBUTEROL SULFATE. [Concomitant]
     Active Substance: ALBUTEROL SULFATE
     Indication: ASTHMA
     Route: 055
  8. PROVENTIL HSA [Concomitant]
     Indication: RESPIRATORY DISORDER
     Dosage: 2 PUFFS PRN
     Route: 055
  9. LANTUS [Concomitant]
     Active Substance: INSULIN GLARGINE
     Indication: DIABETES MELLITUS
     Dosage: 120 UNITS DAILY
     Route: 058
  10. NEXIUM [Suspect]
     Active Substance: ESOMEPRAZOLE MAGNESIUM
     Indication: GASTROOESOPHAGEAL REFLUX DISEASE
     Route: 048
  11. CRESTOR [Suspect]
     Active Substance: ROSUVASTATIN CALCIUM
     Indication: BLOOD CHOLESTEROL ABNORMAL
     Route: 048
     Dates: end: 201402
  12. LEVEMIR [Suspect]
     Active Substance: INSULIN DETEMIR
     Indication: DIABETES MELLITUS
     Dosage: 40 UNITS TWO TIMES A DAY
     Route: 058
  13. DIOVAN HCT [Concomitant]
     Active Substance: HYDROCHLOROTHIAZIDE\VALSARTAN
     Indication: BLOOD PRESSURE
     Dosage: 80MG -12.25 MG DAILY
     Route: 048
  14. PROVENTIL HSA [Concomitant]
     Indication: ASTHMA
     Dosage: 2 PUFFS PRN
     Route: 055
  15. NEXIUM [Suspect]
     Active Substance: ESOMEPRAZOLE MAGNESIUM
     Indication: GASTROOESOPHAGEAL REFLUX DISEASE
     Route: 048
     Dates: start: 2002
  16. TOPROL XL [Suspect]
     Active Substance: METOPROLOL SUCCINATE
     Indication: HEART RATE IRREGULAR
     Route: 048
  17. TOPROL XL [Suspect]
     Active Substance: METOPROLOL SUCCINATE
     Indication: HYPERTENSION
     Route: 048
     Dates: start: 2000
  18. IRON FERROUS SULFATE [Concomitant]
     Indication: ANAEMIA
     Route: 048
  19. PHENAZOPYRIDINE. [Concomitant]
     Active Substance: PHENAZOPYRIDINE
     Indication: DYSURIA
     Route: 048
  20. ALBUTEROL SULFATE. [Concomitant]
     Active Substance: ALBUTEROL SULFATE
     Indication: CHRONIC OBSTRUCTIVE PULMONARY DISEASE
     Route: 055
  21. HUMALOG [Concomitant]
     Active Substance: INSULIN LISPRO
     Indication: DIABETES MELLITUS
     Dosage: 100 TID
     Route: 058
  22. GENERIC STATIN [Concomitant]
  23. NEXIUM [Suspect]
     Active Substance: ESOMEPRAZOLE MAGNESIUM
     Indication: GASTROOESOPHAGEAL REFLUX DISEASE
     Route: 048
  24. CRESTOR [Suspect]
     Active Substance: ROSUVASTATIN CALCIUM
     Indication: BLOOD CHOLESTEROL ABNORMAL
     Dosage: GENERIC
     Route: 048
     Dates: start: 201402
  25. LEVEMIR [Suspect]
     Active Substance: INSULIN DETEMIR
     Indication: DIABETES MELLITUS
     Dosage: 60 UNITS TWO TIMES DAY
     Route: 058
  26. VITAMIN D [Concomitant]
     Active Substance: CHOLECALCIFEROL
     Indication: VITAMIN D DEFICIENCY
     Dosage: 1.25 MG 50000 UNITS WEEK
     Route: 048
  27. HYDROCODONE [Concomitant]
     Active Substance: HYDROCODONE
     Indication: PAIN
     Dosage: 10 MG PRN
     Route: 048
  28. DIAZEPAM. [Concomitant]
     Active Substance: DIAZEPAM
     Indication: STRESS
     Route: 048
     Dates: start: 2013
  29. DIAZEPAM. [Concomitant]
     Active Substance: DIAZEPAM
     Indication: STRESS
     Route: 048
  30. DIAZEPAM. [Concomitant]
     Active Substance: DIAZEPAM
     Indication: STRESS
     Route: 048
  31. ALBUTEROL SULFATE. [Concomitant]
     Active Substance: ALBUTEROL SULFATE
     Indication: ASTHMA
     Dosage: 25MG/3ML VIA NEBULIZER
     Route: 055
  32. ALBUTEROL SULFATE. [Concomitant]
     Active Substance: ALBUTEROL SULFATE
     Indication: CHRONIC OBSTRUCTIVE PULMONARY DISEASE
     Dosage: 25MG/3ML VIA NEBULIZER
     Route: 055
  33. PROVENTIL HSA [Concomitant]
     Indication: CHRONIC OBSTRUCTIVE PULMONARY DISEASE
     Dosage: 2 PUFFS PRN
     Route: 055
  34. CENTRUM SILVER [Concomitant]
     Active Substance: VITAMINS
     Dosage: PRN
  35. NEXIUM [Suspect]
     Active Substance: ESOMEPRAZOLE MAGNESIUM
     Indication: GASTROOESOPHAGEAL REFLUX DISEASE
     Route: 048
     Dates: start: 2002
  36. LIPITOR [Suspect]
     Active Substance: ATORVASTATIN CALCIUM
     Dosage: GENERIC
     Route: 048
     Dates: start: 201402, end: 201404
  37. HYDROCODONE [Concomitant]
     Active Substance: HYDROCODONE
     Indication: PAIN
     Dosage: 10-325 MG Q6H,
     Route: 048
     Dates: start: 2005
  38. DIAZEPAM. [Concomitant]
     Active Substance: DIAZEPAM
     Indication: STRESS
     Route: 048
  39. ALBUTEROL SULFATE. [Concomitant]
     Active Substance: ALBUTEROL SULFATE
     Indication: CHRONIC OBSTRUCTIVE PULMONARY DISEASE
     Route: 055
  40. HUMALOG [Concomitant]
     Active Substance: INSULIN LISPRO
     Indication: DIABETES MELLITUS
     Dosage: 55 UNITS
     Route: 058
  41. HUMALOG [Concomitant]
     Active Substance: INSULIN LISPRO
     Indication: DIABETES MELLITUS
     Dosage: 40  UNITS
     Route: 058
     Dates: start: 201407
  42. DIAZEPAM. [Concomitant]
     Active Substance: DIAZEPAM
     Indication: STRESS
     Route: 048
  43. HUMALOG [Concomitant]
     Active Substance: INSULIN LISPRO
     Indication: DIABETES MELLITUS
     Dosage: 120 UNITS DAILY
     Route: 058
  44. CRESTOR [Suspect]
     Active Substance: ROSUVASTATIN CALCIUM
     Indication: BLOOD CHOLESTEROL ABNORMAL
     Route: 048
     Dates: start: 201402
  45. DIAZEPAM. [Concomitant]
     Active Substance: DIAZEPAM
     Indication: STRESS
     Route: 048
     Dates: start: 2013
  46. ALBUTEROL SULFATE. [Concomitant]
     Active Substance: ALBUTEROL SULFATE
     Indication: ASTHMA
     Route: 055

REACTIONS (40)
  - Haemorrhagic anaemia [Unknown]
  - Diarrhoea [Unknown]
  - Abdominal discomfort [Unknown]
  - Malaise [Unknown]
  - Chronic obstructive pulmonary disease [Unknown]
  - Blood calcium increased [Unknown]
  - Intentional product misuse [Unknown]
  - Road traffic accident [Unknown]
  - Uterine enlargement [Unknown]
  - Mobility decreased [Unknown]
  - Urinary tract infection [Unknown]
  - Headache [Unknown]
  - Sleep apnoea syndrome [Unknown]
  - Pain [Unknown]
  - Muscle twitching [Unknown]
  - Insomnia [Unknown]
  - Blood cholesterol increased [Unknown]
  - Ear pain [Unknown]
  - Cardiac murmur [Unknown]
  - Myalgia [Unknown]
  - Pain in jaw [Not Recovered/Not Resolved]
  - Heart rate irregular [Unknown]
  - Dysstasia [Unknown]
  - Cervix carcinoma [Not Recovered/Not Resolved]
  - Heart rate increased [Unknown]
  - Cardiac valve disease [Unknown]
  - Uterine haemorrhage [Unknown]
  - Chest pain [Not Recovered/Not Resolved]
  - Blood glucose increased [Unknown]
  - Feeling abnormal [Unknown]
  - Retching [Unknown]
  - Dyspnoea [Unknown]
  - Blood pressure decreased [Unknown]
  - Dysuria [Unknown]
  - Dental caries [Not Recovered/Not Resolved]
  - Drug hypersensitivity [Unknown]
  - Respiratory disorder [Unknown]
  - Arthritis [Unknown]
  - Blood potassium increased [Unknown]
  - Menorrhagia [Unknown]

NARRATIVE: CASE EVENT DATE: 2000
